FAERS Safety Report 4665039-X (Version None)
Quarter: 2005Q2

REPORT INFORMATION
  Report Type: 
  Country: None (occurrence: None)
  Receive Date: 20050517
  Receipt Date: 20050510
  Transmission Date: 20051028
  Serious: Yes (Other)
  Sender: FDA-Public Use
  Company Number: 200510233BYL

PATIENT
  Age: 77 Year
  Sex: Male
  Weight: 49.7 kg

DRUGS (4)
  1. CIPROFLOXACIN HYDROCHLORIDE [Suspect]
     Indication: UPPER RESPIRATORY TRACT INFLAMMATION
     Dosage: 200 MG, TID, ORAL
     Route: 048
     Dates: start: 20050414, end: 20050416
  2. SYOSEIRYUTO [Concomitant]
  3. NOLEPTAN [Concomitant]
  4. BIOFERMIN R [Concomitant]

REACTIONS (2)
  - DRUG INEFFECTIVE [None]
  - RHABDOMYOLYSIS [None]
